FAERS Safety Report 9254983 (Version 1)
Quarter: 2013Q2

REPORT INFORMATION
  Report Type: Spontaneous
  Country: US (occurrence: US)
  Receive Date: 20130425
  Receipt Date: 20130425
  Transmission Date: 20140414
  Serious: No
  Sender: FDA-Public Use
  Company Number: US-009507513-1304USA012818

PATIENT
  Sex: Male

DRUGS (2)
  1. SYLATRON [Suspect]
     Indication: MALIGNANT MELANOMA
     Dosage: 888 MICROGRAM, QW
     Dates: start: 2011, end: 2011
  2. SYLATRON [Suspect]
     Dosage: 444 MICROGRAM, QW
     Dates: start: 2011

REACTIONS (8)
  - Sluggishness [Recovered/Resolved]
  - Euphoric mood [Recovered/Resolved]
  - Panic attack [Recovered/Resolved]
  - Memory impairment [Recovered/Resolved]
  - Dry mouth [Recovered/Resolved]
  - Dehydration [Recovered/Resolved]
  - Product solubility abnormal [Unknown]
  - No adverse event [Unknown]
